FAERS Safety Report 16307878 (Version 1)
Quarter: 2019Q2

REPORT INFORMATION
  Report Type: Report from Study
  Country: JP (occurrence: JP)
  Receive Date: 20190514
  Receipt Date: 20190514
  Transmission Date: 20190711
  Serious: Yes (Hospitalization)
  Sender: FDA-Public Use
  Company Number: JP-BAUSCH-BL-2019-013829

PATIENT
  Age: 32 Year
  Sex: Male
  Weight: 76 kg

DRUGS (2)
  1. LUMICEF [Suspect]
     Active Substance: BRODALUMAB
     Dosage: SYRINGE; 2 MONTHS 10 DAYS
     Route: 058
     Dates: start: 20180811, end: 20181020
  2. LUMICEF [Suspect]
     Active Substance: BRODALUMAB
     Indication: PSORIASIS
     Dosage: SYRINGE
     Route: 058
     Dates: start: 20180728, end: 20180804

REACTIONS (2)
  - Lung abscess [Recovering/Resolving]
  - Aspergilloma [Recovering/Resolving]

NARRATIVE: CASE EVENT DATE: 20181027
